FAERS Safety Report 9012080 (Version 1)
Quarter: 2012Q4

REPORT INFORMATION
  Report Type: Spontaneous
  Country: FR (occurrence: None)
  Receive Date: 20121228
  Receipt Date: 20121228
  Transmission Date: 20130627
  Serious: Yes (Other)
  Sender: FDA-Public Use
  Company Number: 2012TP000456

PATIENT
  Age: 70 Year
  Sex: Female
  Weight: 55 kg

DRUGS (5)
  1. VERSATIS [Suspect]
     Indication: NEUROPATHIC PAIN
     Route: 061
     Dates: start: 20120901, end: 201211
  2. PARACETAMOL [Concomitant]
  3. COLCHICINE [Concomitant]
  4. FOSAMAX [Concomitant]
  5. NSAID^S [Concomitant]

REACTIONS (4)
  - Off label use [None]
  - Dysuria [None]
  - Anuria [None]
  - Bladder dilatation [None]
